FAERS Safety Report 8603740-3 (Version None)
Quarter: 2012Q3

REPORT INFORMATION
  Report Type: 
  Country: None (occurrence: None)
  Receive Date: 20120817
  Receipt Date: 20120604
  Transmission Date: 20120928
  Serious: No
  Sender: FDA-Public Use
  Company Number: US-009507513-2012SP035508

PATIENT

DRUGS (4)
  1. CLARITIN [Suspect]
     Indication: HYPERSENSITIVITY
     Dosage: 10 MG, QD
     Route: 048
     Dates: start: 20120401, end: 20120502
  2. CLARITIN [Suspect]
     Indication: MEDICAL OBSERVATION
  3. CLARITIN [Suspect]
     Indication: SEASONAL ALLERGY
  4. COPAXONE [Concomitant]
     Indication: PRODUCT USED FOR UNKNOWN INDICATION
     Dosage: UNK UNK, UNKNOWN

REACTIONS (1)
  - DRUG INEFFECTIVE [None]
